FAERS Safety Report 6214567-4 (Version None)
Quarter: 2009Q2

REPORT INFORMATION
  Report Type: 
  Country: None (occurrence: None)
  Receive Date: 20090604
  Receipt Date: 20090528
  Transmission Date: 20091009
  Serious: Yes (Hospitalization, Other)
  Sender: FDA-Public Use
  Company Number: PHEH2009US05389

PATIENT
  Sex: Female

DRUGS (4)
  1. RECLAST [Suspect]
     Indication: OSTEOPOROSIS
     Dosage: 5 MG, UNK
     Route: 042
     Dates: start: 20090227
  2. ZETIA [Concomitant]
  3. NEXIUM [Concomitant]
  4. RILUTEK [Concomitant]
     Indication: RESTLESS LEGS SYNDROME

REACTIONS (2)
  - INTESTINAL RESECTION [None]
  - VOLVULUS [None]
